FAERS Safety Report 19658994 (Version 2)
Quarter: 2021Q3

REPORT INFORMATION
  Report Type: Report from Study
  Country: None (occurrence: US)
  Receive Date: 20210805
  Receipt Date: 20210817
  Transmission Date: 20211014
  Serious: Yes (Hospitalization)
  Sender: FDA-Public Use
  Company Number: US-ABBVIE-21K-163-3957651-00

PATIENT
  Age: 74 Year
  Sex: Female
  Weight: 95.34 kg

DRUGS (2)
  1. HUMIRA [Suspect]
     Active Substance: ADALIMUMAB
     Indication: CROHN^S DISEASE
     Dosage: CITRATE FREE
     Route: 058
  2. HUMIRA [Suspect]
     Active Substance: ADALIMUMAB
     Indication: COLITIS ULCERATIVE

REACTIONS (9)
  - Spinal column injury [Unknown]
  - Foot fracture [Recovering/Resolving]
  - Dyspnoea [Unknown]
  - Limb injury [Unknown]
  - Cardiac failure congestive [Not Recovered/Not Resolved]
  - Pulmonary oedema [Unknown]
  - Back injury [Unknown]
  - Hospitalisation [Unknown]
  - Fall [Recovering/Resolving]

NARRATIVE: CASE EVENT DATE: 2021
